FAERS Safety Report 8909220 (Version 1)
Quarter: 2012Q4

REPORT INFORMATION
  Report Type: Spontaneous
  Country: US (occurrence: None)
  Receive Date: 20121113
  Receipt Date: 20121113
  Transmission Date: 20130627
  Serious: No
  Sender: FDA-Public Use
  Company Number: None

PATIENT

DRUGS (1)
  1. CLONIDINE [Suspect]

REACTIONS (20)
  - Somnolence [None]
  - Musculoskeletal stiffness [None]
  - Cough [None]
  - Sleep disorder due to general medical condition, insomnia type [None]
  - Retching [None]
  - Increased bronchial secretion [None]
  - Respiratory disorder [None]
  - Constipation [None]
  - Faecal incontinence [None]
  - Hypertension [None]
  - Heart rate decreased [None]
  - Dyspnoea [None]
  - Dyspnoea [None]
  - Speech disorder [None]
  - Vision blurred [None]
  - Metamorphopsia [None]
  - Blindness transient [None]
  - Cardiovascular insufficiency [None]
  - Mitral valve incompetence [None]
  - Right ventricular failure [None]
